FAERS Safety Report 12579185 (Version 4)
Quarter: 2017Q4

REPORT INFORMATION
  Report Type: Report from Study
  Country: DE (occurrence: DE)
  Receive Date: 20160721
  Receipt Date: 20171003
  Transmission Date: 20180320
  Serious: Yes (Death, Other)
  Sender: FDA-Public Use
  Company Number: DE-CELGENEUS-062-21880-14070017

PATIENT

DRUGS (1)
  1. REVLIMID [Suspect]
     Active Substance: LENALIDOMIDE
     Indication: CHRONIC LYMPHOCYTIC LEUKAEMIA
     Route: 048

REACTIONS (72)
  - Acute lymphocytic leukaemia [Fatal]
  - Unevaluable event [Unknown]
  - Adverse event [Fatal]
  - Sinusitis [Unknown]
  - Basal cell carcinoma [Unknown]
  - Prostate cancer [Unknown]
  - Squamous cell carcinoma [Unknown]
  - Pulmonary embolism [Unknown]
  - Deep vein thrombosis [Unknown]
  - Upper respiratory tract infection [Unknown]
  - Cough [Unknown]
  - Febrile infection [Unknown]
  - Fatigue [Unknown]
  - Infection [Unknown]
  - General physical health deterioration [Unknown]
  - Radius fracture [Unknown]
  - Syncope [Unknown]
  - Glomerulonephritis minimal lesion [Unknown]
  - Ear disorder [Unknown]
  - Gastrointestinal disorder [Unknown]
  - Rash [Unknown]
  - Mechanical ileus [Unknown]
  - Cellulitis [Unknown]
  - Septic arthritis staphylococcal [Unknown]
  - Nasopharyngitis [Unknown]
  - Muscle spasms [Unknown]
  - Pruritus [Unknown]
  - Vertigo [Unknown]
  - Lower respiratory tract infection [Unknown]
  - Dyspnoea [Unknown]
  - Nervous system disorder [Unknown]
  - Leukopenia [Unknown]
  - Neutropenic infection [Unknown]
  - Adverse event [Unknown]
  - Bronchopulmonary aspergillosis [Unknown]
  - Pneumocystis jirovecii pneumonia [Unknown]
  - Pulmonary sepsis [Unknown]
  - Toxicity to various agents [Unknown]
  - Polyneuropathy [Unknown]
  - Neutropenia [Unknown]
  - General symptom [Unknown]
  - Coronary artery stenosis [Unknown]
  - Dental caries [Unknown]
  - Rotator cuff syndrome [Unknown]
  - Spinal column stenosis [Unknown]
  - Bronchitis [Unknown]
  - Neoplasm [Fatal]
  - Wound infection staphylococcal [Unknown]
  - Renal disorder [Unknown]
  - Eye disorder [Unknown]
  - Metabolic disorder [Unknown]
  - Dermatitis allergic [Unknown]
  - Arthralgia [Unknown]
  - Haematotoxicity [Unknown]
  - Constipation [Unknown]
  - Mental disorder [Unknown]
  - Cardiac disorder [Unknown]
  - Inguinal hernia [Unknown]
  - Stomatitis [Unknown]
  - Tendon rupture [Unknown]
  - Agitation [Unknown]
  - Thrombosis [Unknown]
  - Pseudomonas bronchitis [Unknown]
  - Headache [Unknown]
  - Diarrhoea [Unknown]
  - Musculoskeletal disorder [Unknown]
  - Angiopathy [Unknown]
  - Herpes zoster [Unknown]
  - Dysaesthesia [Unknown]
  - Pneumonia [Unknown]
  - Skin disorder [Unknown]
  - Chronic lymphocytic leukaemia recurrent [Unknown]
